FAERS Safety Report 20573763 (Version 1)
Quarter: 2022Q1

REPORT INFORMATION
  Report Type: Spontaneous
  Country: US (occurrence: None)
  Receive Date: 20220309
  Receipt Date: 20220309
  Transmission Date: 20220423
  Serious: No
  Sender: FDA-Public Use
  Company Number: 2022A081917

PATIENT
  Sex: Female
  Weight: 104.3 kg

DRUGS (1)
  1. FARXIGA [Suspect]
     Active Substance: DAPAGLIFLOZIN PROPANEDIOL
     Indication: Diabetes mellitus
     Dosage: ONCE DAILY, 2 YEARS AGO
     Route: 048

REACTIONS (1)
  - Fungal infection [Unknown]
